FAERS Safety Report 21493471 (Version 2)
Quarter: 2023Q1

REPORT INFORMATION
  Report Type: Spontaneous
  Country: GB (occurrence: GB)
  Receive Date: 20221021
  Receipt Date: 20230326
  Transmission Date: 20230417
  Serious: Yes (Other)
  Sender: FDA-Public Use
  Company Number: GB-TEVA-2022-GB-2817446

PATIENT
  Age: 23 Year
  Sex: Female

DRUGS (2)
  1. COPAXONE [Suspect]
     Active Substance: GLATIRAMER ACETATE
     Indication: Relapsing-remitting multiple sclerosis
     Route: 058
     Dates: start: 20220426, end: 20221011
  2. COPAXONE [Suspect]
     Active Substance: GLATIRAMER ACETATE
     Route: 065
     Dates: end: 20221011

REACTIONS (9)
  - Circulatory collapse [Recovered/Resolved]
  - Type I hypersensitivity [Recovering/Resolving]
  - Confusional state [Recovered/Resolved]
  - Vomiting [Recovering/Resolving]
  - Erythema [Recovering/Resolving]
  - Skin discolouration [Recovering/Resolving]
  - Swelling [Recovering/Resolving]
  - Swelling face [Unknown]
  - Fatigue [Unknown]

NARRATIVE: CASE EVENT DATE: 20221010
